FAERS Safety Report 25824096 (Version 1)
Quarter: 2025Q3

REPORT INFORMATION
  Report Type: Report from Study
  Country: US (occurrence: US)
  Receive Date: 20250919
  Receipt Date: 20250919
  Transmission Date: 20251020
  Serious: Yes (Hospitalization, Other)
  Sender: ABBVIE
  Company Number: US-ABBVIE-6437082

PATIENT
  Age: 61 Year
  Sex: Female
  Weight: 92 kg

DRUGS (9)
  1. BOTOX [Suspect]
     Active Substance: ONABOTULINUMTOXINA
     Indication: Blepharospasm
     Route: 065
  2. LYRICA [Concomitant]
     Active Substance: PREGABALIN
     Indication: Neuralgia
  3. LEVODOPA [Suspect]
     Active Substance: LEVODOPA
     Indication: Oropharyngeal spasm
  4. NAMENDA [Concomitant]
     Active Substance: MEMANTINE HYDROCHLORIDE
     Indication: Musculoskeletal stiffness
  5. OMEPRAZOLE [Concomitant]
     Active Substance: OMEPRAZOLE
     Indication: Gastrooesophageal reflux disease
  6. LIDOCAINE [Concomitant]
     Active Substance: LIDOCAINE
     Indication: Pain
  7. MINOCYCLINE [Concomitant]
     Active Substance: MINOCYCLINE HYDROCHLORIDE
     Indication: Rosacea
  8. MELOXICAM [Concomitant]
     Active Substance: MELOXICAM
     Indication: Inflammation
  9. ZOLOFT [Suspect]
     Active Substance: SERTRALINE HYDROCHLORIDE
     Indication: Product used for unknown indication
     Route: 065

REACTIONS (17)
  - Pneumonia [Recovered/Resolved]
  - Aspiration [Recovered/Resolved]
  - Muscle spasms [Recovering/Resolving]
  - Muscle spasms [Not Recovered/Not Resolved]
  - Tongue thrust [Recovering/Resolving]
  - Oromandibular dystonia [Recovering/Resolving]
  - Muscle spasms [Not Recovered/Not Resolved]
  - Incision site inflammation [Recovered/Resolved]
  - Tongue spasm [Recovering/Resolving]
  - Incision site cellulitis [Recovered/Resolved]
  - Illness [Recovered/Resolved]
  - Spasmodic dysphonia [Recovering/Resolving]
  - Oropharyngeal spasm [Recovering/Resolving]
  - Foot deformity [Not Recovered/Not Resolved]
  - Pain [Recovered/Resolved]
  - Appendicitis [Recovered/Resolved]
  - Rash [Recovered/Resolved]

NARRATIVE: CASE EVENT DATE: 20230101
